FAERS Safety Report 14125584 (Version 1)
Quarter: 2017Q4

REPORT INFORMATION
  Report Type: Spontaneous
  Country: GB (occurrence: GB)
  Receive Date: 20171025
  Receipt Date: 20171025
  Transmission Date: 20180321
  Serious: Yes (Disabling)
  Sender: FDA-Public Use
  Company Number: GB-SA-2017SA203780

PATIENT
  Age: 69 Year
  Sex: Male

DRUGS (5)
  1. SIMVASTATIN. [Concomitant]
     Active Substance: SIMVASTATIN
     Dosage: DOSE NOT CHANGED
     Route: 048
  2. RAMIPRIL. [Concomitant]
     Active Substance: RAMIPRIL
     Dosage: DOSE NOT CHANGED
     Route: 048
  3. CLEXANE [Suspect]
     Active Substance: ENOXAPARIN SODIUM
     Dosage: 120MG/0.8ML, SOLUTION FOR INJECTION IN PRE-FILLED SYRINGE
     Route: 058
  4. NAPROXEN. [Suspect]
     Active Substance: NAPROXEN
     Route: 048
  5. ADALAT [Concomitant]
     Active Substance: NIFEDIPINE
     Dosage: DOSE NOT CHANGED
     Route: 048

REACTIONS (3)
  - Diarrhoea [Not Recovered/Not Resolved]
  - Faeces discoloured [Not Recovered/Not Resolved]
  - Dizziness [Unknown]

NARRATIVE: CASE EVENT DATE: 20171009
